FAERS Safety Report 15585296 (Version 1)
Quarter: 2018Q4

REPORT INFORMATION
  Report Type: Spontaneous
  Country: US (occurrence: US)
  Receive Date: 20181102
  Receipt Date: 20181102
  Transmission Date: 20190205
  Serious: Yes (Disabling, Other)
  Sender: FDA-Public Use
  Company Number: US-REGENERON PHARMACEUTICALS, INC.-2018-42726

PATIENT

DRUGS (8)
  1. EYLEA [Suspect]
     Active Substance: AFLIBERCEPT
     Dosage: EVERY 6 - 8 WEEKS, OS
     Route: 031
     Dates: start: 2016
  2. LOSARTAN. [Concomitant]
     Active Substance: LOSARTAN
     Indication: PRODUCT USED FOR UNKNOWN INDICATION
     Dosage: UNK
  3. LASIX [Concomitant]
     Active Substance: FUROSEMIDE
     Indication: PRODUCT USED FOR UNKNOWN INDICATION
     Dosage: UNK
  4. LUMIGAN [Concomitant]
     Active Substance: BIMATOPROST
     Indication: PRODUCT USED FOR UNKNOWN INDICATION
     Dosage: UNK
  5. CREON [Concomitant]
     Active Substance: PANCRELIPASE AMYLASE\PANCRELIPASE LIPASE\PANCRELIPASE PROTEASE
     Indication: PANCREATIC DISORDER
     Dosage: UNK, QD
  6. EYLEA [Suspect]
     Active Substance: AFLIBERCEPT
     Indication: NEOVASCULAR AGE-RELATED MACULAR DEGENERATION
     Dosage: ONE AND ONLY INJECTION INTO OD
     Route: 031
     Dates: start: 2016, end: 2016
  7. XIIDRA [Concomitant]
     Active Substance: LIFITEGRAST
     Indication: DRY EYE
     Dosage: UNK
  8. EYLEA [Suspect]
     Active Substance: AFLIBERCEPT
     Dosage: EVERY 6 - 8 WEEKS, LAST INJECTION TO OS
     Route: 031
     Dates: start: 20181017, end: 20181017

REACTIONS (6)
  - Drug ineffective [Unknown]
  - Blood pressure increased [Unknown]
  - Blindness [Not Recovered/Not Resolved]
  - Eye haemorrhage [Unknown]
  - Wrong technique in product usage process [Unknown]
  - Swelling face [Unknown]

NARRATIVE: CASE EVENT DATE: 201709
